FAERS Safety Report 4534337-2 (Version None)
Quarter: 2004Q4

REPORT INFORMATION
  Report Type: 
  Country: None (occurrence: None)
  Receive Date: 20041221
  Receipt Date: 20041221
  Transmission Date: 20050328
  Serious: Yes (Hospitalization)
  Sender: FDA-Public Use
  Company Number: None

PATIENT
  Age: 41 Year
  Sex: Male
  Weight: 137 kg

DRUGS (5)
  1. LISINOPRIL [Suspect]
     Indication: HYPERTENSION
     Dosage: 5MG PO QD
     Route: 048
     Dates: start: 20040823, end: 20041027
  2. BENZTROPINE MESYLATE [Concomitant]
  3. CLOZAPINE [Concomitant]
  4. GEMFIBROZIL [Concomitant]
  5. HYDROCHLOROTHIAZIDE [Concomitant]

REACTIONS (2)
  - DYSPHAGIA [None]
  - LARYNGEAL OEDEMA [None]
